FAERS Safety Report 9552919 (Version 1)
Quarter: 2013Q3

REPORT INFORMATION
  Report Type: Spontaneous
  Country: US (occurrence: US)
  Receive Date: 20130925
  Receipt Date: 20130925
  Transmission Date: 20140515
  Serious: No
  Sender: FDA-Public Use
  Company Number: US-PURDUE-USA-2012-0085164

PATIENT
  Sex: Male

DRUGS (2)
  1. TRAMADOL (SIMILAR TO NDA 21-745) [Suspect]
     Indication: BREAKTHROUGH PAIN
     Dosage: UNK
  2. BUTRANS [Concomitant]
     Indication: PAIN
     Dosage: 10 MCG/HR, UNK
     Route: 062

REACTIONS (1)
  - Nausea [Unknown]
